FAERS Safety Report 23635223 (Version 1)
Quarter: 2024Q1

REPORT INFORMATION
  Report Type: Spontaneous
  Country: US (occurrence: US)
  Receive Date: 20240315
  Receipt Date: 20240315
  Transmission Date: 20240410
  Serious: Yes (Other)
  Sender: FDA-Public Use
  Company Number: US-DRL-USA-LIT/USA/24/0004071

PATIENT
  Age: 51 Year
  Sex: Male

DRUGS (3)
  1. PEMETREXED [Suspect]
     Active Substance: PEMETREXED
     Indication: Large cell lung cancer metastatic
     Dosage: THREE CYCLES
  2. CARBOPLATIN [Suspect]
     Active Substance: CARBOPLATIN
     Indication: Large cell lung cancer metastatic
     Dosage: THREE CYCLES
  3. NIVOLUMAB [Suspect]
     Active Substance: NIVOLUMAB
     Indication: Large cell lung cancer metastatic

REACTIONS (2)
  - Disease progression [Unknown]
  - Treatment failure [Unknown]
